FAERS Safety Report 12355787 (Version 1)
Quarter: 2016Q2

REPORT INFORMATION
  Report Type: Spontaneous
  Country: US (occurrence: US)
  Receive Date: 20160511
  Receipt Date: 20160511
  Transmission Date: 20160815
  Serious: Yes (Other)
  Sender: FDA-Public Use
  Company Number: US-IPSEN BIOPHARMACEUTICALS, INC.-2016-03984

PATIENT
  Age: 77 Year
  Sex: Female
  Weight: 77.11 kg

DRUGS (18)
  1. LUTEIN [Concomitant]
     Active Substance: LUTEIN
  2. RECTICARE [Concomitant]
     Active Substance: LIDOCAINE
  3. DICYCLOMINE [Concomitant]
     Active Substance: DICYCLOMINE HYDROCHLORIDE
     Indication: ABDOMINAL PAIN UPPER
  4. DILTIAZEM [Concomitant]
     Active Substance: DILTIAZEM
  5. ZANTAC [Concomitant]
     Active Substance: RANITIDINE HYDROCHLORIDE
  6. COENZYME Q10 [Concomitant]
     Active Substance: UBIDECARENONE
  7. DIOVAN 320/25 [Concomitant]
     Indication: BLOOD PRESSURE MEASUREMENT
     Dosage: 320/25 MG
  8. PROCTOZONE [Concomitant]
     Active Substance: HYDROCORTISONE
     Indication: HAEMORRHOIDS
  9. LEXAPRO [Concomitant]
     Active Substance: ESCITALOPRAM OXALATE
  10. MULTIVITAMIN [Concomitant]
     Active Substance: VITAMINS
  11. SOMATULINE DEPOT [Suspect]
     Active Substance: LANREOTIDE ACETATE
     Indication: CARCINOID TUMOUR
     Dosage: 120 MG
     Route: 058
  12. ZETIA [Concomitant]
     Active Substance: EZETIMIBE
  13. IMODIUM [Concomitant]
     Active Substance: LOPERAMIDE HYDROCHLORIDE
  14. ZOCOR [Concomitant]
     Active Substance: SIMVASTATIN
  15. CLARITIN [Concomitant]
     Active Substance: LORATADINE
  16. RESTORIL [Concomitant]
     Active Substance: TEMAZEPAM
  17. ALIGN PROBIOTIC [Concomitant]
  18. TYLENOL [Concomitant]
     Active Substance: ACETAMINOPHEN

REACTIONS (2)
  - Injection site mass [Not Recovered/Not Resolved]
  - Malignant neoplasm progression [Unknown]

NARRATIVE: CASE EVENT DATE: 201602
